FAERS Safety Report 21957127 (Version 2)
Quarter: 2023Q1

REPORT INFORMATION
  Report Type: Spontaneous
  Country: US (occurrence: US)
  Receive Date: 20230206
  Receipt Date: 20230223
  Transmission Date: 20230418
  Serious: No
  Sender: FDA-Public Use
  Company Number: US-BIOVITRUM-2023US01841

PATIENT
  Sex: Male
  Weight: 7 kg

DRUGS (1)
  1. SYNAGIS [Suspect]
     Active Substance: PALIVIZUMAB
     Indication: Premature baby
     Dosage: 15 MG/KG INTO THE MUSCLE

REACTIONS (3)
  - COVID-19 [Unknown]
  - Rash [Unknown]
  - Product dose omission issue [Unknown]
